FAERS Safety Report 9475168 (Version 1)
Quarter: 2013Q3

REPORT INFORMATION
  Report Type: Spontaneous
  Country: GB (occurrence: GB)
  Receive Date: 20130824
  Receipt Date: 20130824
  Transmission Date: 20140515
  Serious: Yes (Other)
  Sender: FDA-Public Use
  Company Number: PHHY2013GB089211

PATIENT
  Age: 31 Year
  Sex: Female
  Weight: 51.71 kg

DRUGS (1)
  1. AMOXICILLIN [Suspect]
     Indication: PERICORONITIS
     Dosage: 250 MG, TID
     Route: 048
     Dates: start: 20130803, end: 20130805

REACTIONS (4)
  - Lymphadenopathy [Not Recovered/Not Resolved]
  - Urticaria [Not Recovered/Not Resolved]
  - Swelling [Not Recovered/Not Resolved]
  - Pain of skin [Not Recovered/Not Resolved]
